FAERS Safety Report 17353817 (Version 2)
Quarter: 2020Q1

REPORT INFORMATION
  Report Type: Report from Study
  Country: US (occurrence: US)
  Receive Date: 20200131
  Receipt Date: 20200316
  Transmission Date: 20200409
  Serious: Yes (Hospitalization)
  Sender: FDA-Public Use
  Company Number: US-VELOXIS PHARMACEUTICALS-2020VELUS-000049

PATIENT
  Age: 56 Year
  Sex: Male
  Weight: 89.9 kg

DRUGS (29)
  1. ENVARSUS XR [Suspect]
     Active Substance: TACROLIMUS
     Indication: PROPHYLAXIS AGAINST TRANSPLANT REJECTION
     Dosage: 3 MG, QD
     Route: 048
     Dates: start: 20191104
  2. ENVARSUS XR [Suspect]
     Active Substance: TACROLIMUS
     Dosage: 2 UNK
     Dates: start: 20191114
  3. ENVARSUS XR [Suspect]
     Active Substance: TACROLIMUS
     Dosage: 2 UNK
     Dates: start: 20191122
  4. ENVARSUS XR [Suspect]
     Active Substance: TACROLIMUS
     Dosage: 2 UNK
     Dates: start: 20191127
  5. ENVARSUS XR [Suspect]
     Active Substance: TACROLIMUS
     Dosage: 3 UNK
     Dates: start: 20200107
  6. ENVARSUS XR [Suspect]
     Active Substance: TACROLIMUS
     Dosage: 2 UNK
     Dates: start: 20200111
  7. FAMOTIDINE. [Concomitant]
     Active Substance: FAMOTIDINE
     Indication: GASTROOESOPHAGEAL REFLUX DISEASE
     Dosage: 40 MG, DAILY
     Route: 048
     Dates: start: 201911
  8. ASPIRIN [ACETYLSALICYLIC ACID] [Concomitant]
     Active Substance: ASPIRIN
     Indication: ANTIPLATELET THERAPY
     Dosage: 81 MG, DAILY
     Route: 048
     Dates: start: 20191118
  9. ENVARSUS XR [Suspect]
     Active Substance: TACROLIMUS
     Dosage: 6 UNK
     Dates: start: 20191111
  10. ENVARSUS XR [Suspect]
     Active Substance: TACROLIMUS
     Dosage: 6 UNK
     Dates: start: 20191112
  11. ENVARSUS XR [Suspect]
     Active Substance: TACROLIMUS
     Dosage: 1 UNK
     Dates: start: 20191213
  12. MYCOPHENOLIC ACID. [Concomitant]
     Active Substance: MYCOPHENOLIC ACID
     Indication: IMMUNOSUPPRESSION
     Dosage: 720 MG, QD
     Route: 048
     Dates: start: 20190111
  13. ENVARSUS XR [Suspect]
     Active Substance: TACROLIMUS
     Indication: IMMUNOSUPPRESSION
     Dosage: 2 MG, QD
     Route: 048
  14. ENVARSUS XR [Suspect]
     Active Substance: TACROLIMUS
     Dosage: 2 UNK
     Dates: start: 20200118
  15. ENVARSUS XR [Suspect]
     Active Substance: TACROLIMUS
     Dosage: 4 UNK
     Dates: start: 20200214
  16. PREDNISONE. [Concomitant]
     Active Substance: PREDNISONE
     Indication: IMMUNOSUPPRESSION
     Dosage: 20 MG, QD
     Route: 048
     Dates: start: 20200111
  17. ENVARSUS XR [Suspect]
     Active Substance: TACROLIMUS
     Dosage: 2 UNK
     Dates: start: 20200126
  18. CELLCEPT [Concomitant]
     Active Substance: MYCOPHENOLATE MOFETIL\MYCOPHENOLATE MOFETIL HYDROCHLORIDE
     Indication: IMMUNOSUPPRESSION
     Dosage: 2000 MG, BID
     Route: 048
     Dates: start: 20191031, end: 20200109
  19. SPIRONOLACTONE. [Concomitant]
     Active Substance: SPIRONOLACTONE
     Indication: DIURETIC THERAPY
     Dosage: 50 MG, DAILY
     Route: 048
     Dates: start: 20191121
  20. ENVARSUS XR [Suspect]
     Active Substance: TACROLIMUS
     Dosage: 4 UNK
     Dates: start: 20200210
  21. ENVARSUS XR [Suspect]
     Active Substance: TACROLIMUS
     Dosage: 3 UNK
     Dates: start: 20200221
  22. ACYCLOVIR [ACICLOVIR] [Concomitant]
     Active Substance: ACYCLOVIR
     Indication: PROPHYLAXIS
     Dosage: 800 MG, DAILY
     Route: 048
     Dates: start: 20191103, end: 20200109
  23. ENVARSUS XR [Suspect]
     Active Substance: TACROLIMUS
     Dosage: 2 UNK
     Dates: start: 20191120
  24. ENVARSUS XR [Suspect]
     Active Substance: TACROLIMUS
     Dosage: 2 UNK
     Dates: start: 20191122
  25. ENVARSUS XR [Suspect]
     Active Substance: TACROLIMUS
     Dosage: 8 UNK
     Dates: start: 20191106
  26. ENVARSUS XR [Suspect]
     Active Substance: TACROLIMUS
     Dosage: 2 UNK
     Dates: start: 20200114
  27. DAPSONE. [Concomitant]
     Active Substance: DAPSONE
     Indication: PROPHYLAXIS
     Dosage: 100 MG, DAILY
     Route: 048
     Dates: start: 20191104, end: 20200109
  28. ENVARSUS XR [Suspect]
     Active Substance: TACROLIMUS
     Dosage: 1 UNK
     Dates: start: 20191223
  29. ENVARSUS XR [Suspect]
     Active Substance: TACROLIMUS
     Dosage: 4 UNK
     Dates: start: 20200131

REACTIONS (3)
  - Liver transplant rejection [Recovered/Resolved]
  - Hepatic enzyme increased [Not Recovered/Not Resolved]
  - Acute myocardial infarction [Recovered/Resolved]

NARRATIVE: CASE EVENT DATE: 20200106
